FAERS Safety Report 8011630-2 (Version None)
Quarter: 2011Q4

REPORT INFORMATION
  Report Type: 
  Country: None (occurrence: None)
  Receive Date: 20111228
  Receipt Date: 20111219
  Transmission Date: 20120403
  Serious: Yes (Hospitalization)
  Sender: FDA-Public Use
  Company Number: US-BAYER-2011-027004

PATIENT
  Age: 21 Year
  Sex: Female
  Weight: 125 kg

DRUGS (15)
  1. LABETALOL HCL [Concomitant]
     Dosage: UNK
     Dates: start: 20060101, end: 20080101
  2. MICRONOR [Concomitant]
     Dosage: UNK
     Route: 048
     Dates: start: 20080728
  3. MACROBID [Concomitant]
     Dosage: 100 MG, UNK
     Route: 048
  4. IRON SULFATETHIAMIN COMPOUND TAB [Concomitant]
     Dosage: UNK
     Route: 048
     Dates: start: 20080716
  5. CLARITIN [Concomitant]
     Route: 048
  6. FIORICET [Concomitant]
     Dosage: UNK
     Route: 048
     Dates: start: 20080616
  7. AMPICILLIN [Concomitant]
     Dosage: 250 MG, UNK
     Route: 048
     Dates: start: 20080616
  8. ACETAMINOPHEN [Concomitant]
     Route: 048
  9. MONISTAT [Concomitant]
  10. YAZ [Suspect]
     Dosage: UNK
     Route: 048
     Dates: start: 20060101, end: 20070101
  11. IBUPROFEN [Concomitant]
     Dosage: UNK
     Route: 048
     Dates: start: 20030101, end: 20100101
  12. HYPOTEARS DDPF [Concomitant]
     Dosage: UNK
     Dates: start: 20080626
  13. MULTI-VITAMINS [Concomitant]
     Route: 048
  14. PERCOCET [Concomitant]
     Dosage: UNK
     Route: 048
     Dates: start: 20080728
  15. COLACE [Concomitant]
     Dosage: UNK
     Route: 048
     Dates: start: 20080728

REACTIONS (11)
  - CHROMATURIA [None]
  - BILE DUCT STONE [None]
  - EMOTIONAL DISTRESS [None]
  - ANXIETY [None]
  - CHOLELITHIASIS [None]
  - PAIN [None]
  - INJURY [None]
  - GENERAL PHYSICAL HEALTH DETERIORATION [None]
  - COORDINATION ABNORMAL [None]
  - GALLBLADDER DISORDER [None]
  - ANHEDONIA [None]
